FAERS Safety Report 11526213 (Version 1)
Quarter: 2015Q3

REPORT INFORMATION
  Report Type: Spontaneous
  Country: US (occurrence: US)
  Receive Date: 20150919
  Receipt Date: 20150919
  Transmission Date: 20151125
  Serious: No
  Sender: FDA-Public Use
  Company Number: US-009507513-1509USA007555

PATIENT
  Age: 33 Year
  Sex: Female

DRUGS (1)
  1. NEXPLANON [Suspect]
     Active Substance: ETONOGESTREL
     Indication: CONTRACEPTION
     Dosage: 1 ROD, ONCE PER THREE YEARS
     Dates: start: 20150910

REACTIONS (3)
  - Device difficult to use [Recovered/Resolved]
  - Skin injury [Unknown]
  - Product quality control issue [Unknown]

NARRATIVE: CASE EVENT DATE: 20150910
